FAERS Safety Report 21030929 (Version 1)
Quarter: 2022Q3

REPORT INFORMATION
  Report Type: Spontaneous
  Country: US (occurrence: None)
  Receive Date: 20220701
  Receipt Date: 20220701
  Transmission Date: 20221027
  Serious: No
  Sender: FDA-Public Use
  Company Number: US-ROCHE-3041416

PATIENT
  Age: 76 Year
  Sex: Female
  Weight: 72.640 kg

DRUGS (5)
  1. ACTEMRA [Suspect]
     Active Substance: TOCILIZUMAB
     Indication: Giant cell arteritis
     Route: 058
     Dates: start: 2021
  2. ACTEMRA [Suspect]
     Active Substance: TOCILIZUMAB
  3. PREDNISONE [Suspect]
     Active Substance: PREDNISONE
     Indication: Product used for unknown indication
     Route: 065
     Dates: start: 2021
  4. PREDNISONE [Suspect]
     Active Substance: PREDNISONE
     Dosage: ONCE A DAY FOR 6 WEEKS ;ONGOING: NO
     Route: 065
     Dates: start: 202112
  5. INSULIN NOS [Concomitant]
     Active Substance: INSULIN NOS

REACTIONS (6)
  - Underdose [Unknown]
  - Headache [Not Recovered/Not Resolved]
  - Swelling [Not Recovered/Not Resolved]
  - Pain [Not Recovered/Not Resolved]
  - Product complaint [Unknown]
  - Blood glucose increased [Unknown]

NARRATIVE: CASE EVENT DATE: 20220225
